FAERS Safety Report 9880134 (Version 1)
Quarter: 2014Q1

REPORT INFORMATION
  Report Type: Spontaneous
  Country: US (occurrence: US)
  Receive Date: 20140207
  Receipt Date: 20140207
  Transmission Date: 20141002
  Serious: No
  Sender: FDA-Public Use
  Company Number: US-BIOGENIDEC-2014BI000025

PATIENT
  Age: 59 Year
  Sex: Female
  Weight: 70 kg

DRUGS (11)
  1. TECFIDERA [Suspect]
     Indication: PRODUCT USED FOR UNKNOWN INDICATION
     Route: 048
  2. TECFIDERA [Suspect]
     Indication: PRODUCT USED FOR UNKNOWN INDICATION
     Route: 048
  3. CLOPIDOGREL [Concomitant]
  4. BYSTOLIC [Concomitant]
  5. ZANTAC [Concomitant]
  6. ASA [Concomitant]
  7. NUVIGIL [Concomitant]
  8. TRIAM/HCTZ [Concomitant]
  9. VITAMIN D [Concomitant]
  10. XOPENEX HFA [Concomitant]
  11. FLONASE [Concomitant]

REACTIONS (5)
  - Sinusitis [Recovered/Resolved]
  - Flushing [Recovered/Resolved]
  - Pruritus [Unknown]
  - Burning sensation [Unknown]
  - Hot flush [Recovered/Resolved]
